FAERS Safety Report 5492358-X (Version None)
Quarter: 2007Q4

REPORT INFORMATION
  Report Type: 
  Country: None (occurrence: None)
  Receive Date: 20071022
  Receipt Date: 20071016
  Transmission Date: 20080405
  Serious: Yes (Death, Other)
  Sender: FDA-Public Use
  Company Number: US-PURDUE-USA_2007_0029718

PATIENT
  Age: 18 Year

DRUGS (2)
  1. OXYCONTIN [Suspect]
     Dosage: UNK MG, UNK
     Route: 048
  2. ALCOHOL [Suspect]
     Dosage: UNK, UNK
     Route: 048

REACTIONS (2)
  - DEATH [None]
  - SUBSTANCE ABUSE [None]
